FAERS Safety Report 4769968-8 (Version None)
Quarter: 2005Q3

REPORT INFORMATION
  Report Type: 
  Country: None (occurrence: None)
  Receive Date: 20050914
  Receipt Date: 20050824
  Transmission Date: 20060218
  Serious: Yes (Hospitalization)
  Sender: FDA-Public Use
  Company Number: ENT 2005-0128

PATIENT
  Age: 75 Year
  Sex: Male

DRUGS (1)
  1. COMTAN [Suspect]
     Indication: PARKINSON'S DISEASE

REACTIONS (3)
  - ABNORMAL BEHAVIOUR [None]
  - ERECTILE DYSFUNCTION [None]
  - LIBIDO DISORDER [None]
